FAERS Safety Report 19458843 (Version 1)
Quarter: 2021Q2

REPORT INFORMATION
  Report Type: Spontaneous
  Country: US (occurrence: US)
  Receive Date: 20210624
  Receipt Date: 20210624
  Transmission Date: 20210717
  Serious: Yes (Other)
  Sender: FDA-Public Use
  Company Number: US-ACELLA PHARMACEUTICALS, LLC-2113076

PATIENT
  Sex: Female

DRUGS (2)
  1. NP THYROID [Suspect]
     Active Substance: LEVOTHYROXINE\LIOTHYRONINE
     Indication: HYPOTHYROIDISM
     Route: 048
     Dates: start: 201911, end: 2020
  2. COMPOUNDED PROGESTERONE CREAM [Concomitant]
     Route: 065

REACTIONS (15)
  - Skin fissures [Recovered/Resolved]
  - Hepatic cyst [Recovered/Resolved]
  - Optic nerve disorder [Not Recovered/Not Resolved]
  - Malaise [Recovered/Resolved]
  - Dry skin [Recovered/Resolved]
  - Vitreous floaters [Recovered/Resolved]
  - Palpitations [Recovered/Resolved]
  - Eye disorder [Not Recovered/Not Resolved]
  - Wound [Recovered/Resolved]
  - Renal impairment [Recovered/Resolved]
  - Renal cyst [Recovered/Resolved]
  - Hyperhidrosis [Recovered/Resolved]
  - Retinal disorder [Not Recovered/Not Resolved]
  - Visual impairment [Recovered/Resolved]
  - Dry eye [Recovered/Resolved]

NARRATIVE: CASE EVENT DATE: 2019
